FAERS Safety Report 21589382 (Version 1)
Quarter: 2022Q4

REPORT INFORMATION
  Report Type: Spontaneous
  Country: US (occurrence: None)
  Receive Date: 20221111
  Receipt Date: 20221111
  Transmission Date: 20230113
  Serious: No
  Sender: FDA-Public Use
  Company Number: None

PATIENT
  Age: 70 Year
  Sex: Female
  Weight: 49.9 kg

DRUGS (9)
  1. INLYTA [Suspect]
     Active Substance: AXITINIB
     Indication: Uterine cancer
     Dosage: FREQUENCY : TWICE A DAY;?
     Route: 048
     Dates: start: 20220913
  2. ALBUTEROL SULFATE [Concomitant]
  3. UMECLIDINIUM BROMIDE\VILANTEROL TRIFENATATE [Concomitant]
     Active Substance: UMECLIDINIUM BROMIDE\VILANTEROL TRIFENATATE
  4. CLONAZEPAM [Concomitant]
  5. GABAPENTIN [Concomitant]
  6. IPRATROPIUM-ALBUTEROL [Concomitant]
  7. LEVOTHYROXINE [Concomitant]
  8. PRAVASTATIN [Concomitant]
  9. PROZAC [Concomitant]

REACTIONS (1)
  - Hospice care [None]
